FAERS Safety Report 4934613-5 (Version None)
Quarter: 2006Q1

REPORT INFORMATION
  Report Type: 
  Country: None (occurrence: None)
  Receive Date: 20060307
  Receipt Date: 20060224
  Transmission Date: 20060701
  Serious: Yes (Hospitalization)
  Sender: FDA-Public Use
  Company Number: US-MERCK-0602USA05773

PATIENT
  Age: 62 Year
  Sex: Male
  Weight: 80 kg

DRUGS (2)
  1. VIOXX [Suspect]
     Indication: LOWER LIMB FRACTURE
     Route: 048
     Dates: start: 20000401, end: 20000718
  2. VIOXX [Suspect]
     Indication: PAIN
     Route: 048
     Dates: start: 20000401, end: 20000718

REACTIONS (4)
  - CEREBROVASCULAR ACCIDENT [None]
  - DIABETES MELLITUS [None]
  - PALPITATIONS [None]
  - SPEECH DISORDER [None]
